FAERS Safety Report 7581545-2 (Version None)
Quarter: 2011Q2

REPORT INFORMATION
  Report Type: 
  Country: None (occurrence: None)
  Receive Date: 20110629
  Receipt Date: 20110623
  Transmission Date: 20111010
  Serious: Yes (Death)
  Sender: FDA-Public Use
  Company Number: PHHY2011AU56259

PATIENT
  Age: 46 Year

DRUGS (4)
  1. METHADONE HCL [Suspect]
     Dosage: UNK
  2. VENLAFAXINE [Suspect]
     Dosage: UNK
  3. OLANZAPINE [Suspect]
     Dosage: UNK
  4. CLOZAPINE [Suspect]
     Dosage: UNK

REACTIONS (4)
  - FOREIGN BODY [None]
  - TOXICITY TO VARIOUS AGENTS [None]
  - RESPIRATORY DEPRESSION [None]
  - ACCIDENTAL POISONING [None]
